FAERS Safety Report 8832130 (Version 1)
Quarter: 2012Q4

REPORT INFORMATION
  Report Type: 
  Country: US (occurrence: US)
  Receive Date: 20121009
  Receipt Date: 20121009
  Transmission Date: 20130627
  Serious: No
  Sender: FDA-Public Use
  Company Number: US-ASTRAZENECA-2012SE74176

PATIENT
  Sex: Male

DRUGS (1)
  1. NEXIUM [Suspect]
     Indication: CROHN^S DISEASE
     Route: 048

REACTIONS (4)
  - Regurgitation [Unknown]
  - Fear of eating [Unknown]
  - Hyperchlorhydria [Unknown]
  - Off label use [Unknown]
